FAERS Safety Report 21702265 (Version 2)
Quarter: 2023Q2

REPORT INFORMATION
  Report Type: Report from Study
  Country: US (occurrence: US)
  Receive Date: 20221208
  Receipt Date: 20230614
  Transmission Date: 20230722
  Serious: No
  Sender: FDA-Public Use
  Company Number: US-ABBVIE-4182740

PATIENT
  Sex: Female

DRUGS (5)
  1. HUMIRA [Suspect]
     Active Substance: ADALIMUMAB
     Indication: Psoriatic arthropathy
     Dosage: CITRATE FREE
     Route: 058
  2. LEUCOVORIN [Concomitant]
     Active Substance: LEUCOVORIN
     Indication: Product used for unknown indication
     Dosage: 5 ML
     Route: 048
     Dates: start: 20230209
  3. Johnson + Johnson Covid-19 vaccine [Concomitant]
     Indication: COVID-19 immunisation
     Dosage: FREQUENCY-ONE IN ONCE
     Route: 030
  4. METHOTREXATE [Concomitant]
     Active Substance: METHOTREXATE
     Indication: Product used for unknown indication
     Dosage: 2.5 MG
     Route: 048
  5. PFIZER-BIONTECH COVID-19 VACCINE [Concomitant]
     Active Substance: TOZINAMERAN
     Indication: COVID-19 immunisation
     Dosage: BOOSTER DOSE?FREQUENCY- ONE IN ONCE
     Route: 030

REACTIONS (4)
  - Arthropathy [Recovering/Resolving]
  - Onychomadesis [Not Recovered/Not Resolved]
  - Abdominal pain upper [Recovered/Resolved]
  - Psoriasis [Unknown]
